FAERS Safety Report 20850545 (Version 1)
Quarter: 2022Q2

REPORT INFORMATION
  Report Type: Spontaneous
  Country: US (occurrence: None)
  Receive Date: 20220518
  Receipt Date: 20220518
  Transmission Date: 20220721
  Serious: Yes (unspecified)
  Sender: FDA-Public Use
  Company Number: None

PATIENT
  Age: 78 Year
  Sex: Female
  Weight: 91.6 kg

DRUGS (1)
  1. BEBTELOVIMAB [Suspect]
     Active Substance: BEBTELOVIMAB
     Indication: COVID-19
     Route: 042
     Dates: start: 20220518, end: 20220518

REACTIONS (4)
  - Abdominal pain upper [None]
  - Dyspepsia [None]
  - Tachycardia [None]
  - Sinus arrhythmia [None]

NARRATIVE: CASE EVENT DATE: 20220518
